APPROVED DRUG PRODUCT: PHENTERMINE HYDROCHLORIDE
Active Ingredient: PHENTERMINE HYDROCHLORIDE
Strength: 30MG
Dosage Form/Route: CAPSULE;ORAL
Application: A086740 | Product #001
Applicant: WATSON LABORATORIES INC
Approved: Mar 21, 1985 | RLD: No | RS: No | Type: DISCN